FAERS Safety Report 6785908-4 (Version None)
Quarter: 2010Q2

REPORT INFORMATION
  Report Type: 
  Country: None (occurrence: None)
  Receive Date: 20100622
  Receipt Date: 20100622
  Transmission Date: 20101027
  Serious: Yes (Life-Threatening, Hospitalization)
  Sender: FDA-Public Use
  Company Number: None

PATIENT
  Age: 81 Year
  Sex: Male
  Weight: 86 kg

DRUGS (2)
  1. QUETIAPINE [Suspect]
     Indication: PARKINSON'S DISEASE
     Dosage: 12.5MG QHS PO  SEVERAL MONTHS
     Route: 048
  2. QUETIAPINE [Suspect]
     Indication: PSYCHOTIC DISORDER
     Dosage: 12.5MG QHS PO  SEVERAL MONTHS
     Route: 048

REACTIONS (4)
  - BLOOD CREATINE PHOSPHOKINASE INCREASED [None]
  - BODY TEMPERATURE INCREASED [None]
  - DRUG DOSE OMISSION [None]
  - HAEMATEMESIS [None]
